FAERS Safety Report 23347381 (Version 3)
Quarter: 2024Q1

REPORT INFORMATION
  Report Type: Spontaneous
  Country: JP (occurrence: JP)
  Receive Date: 20231228
  Receipt Date: 20240208
  Transmission Date: 20240409
  Serious: Yes (Other)
  Sender: FDA-Public Use
  Company Number: JP-JNJFOC-20231268867

PATIENT
  Age: 4 Decade
  Sex: Male

DRUGS (10)
  1. RILPIVIRINE [Suspect]
     Active Substance: RILPIVIRINE
     Indication: Acute HIV infection
     Dosage: DOSE UNKNOWN
     Route: 030
     Dates: start: 2023, end: 2023
  2. VOCABRIA [Suspect]
     Active Substance: CABOTEGRAVIR SODIUM
     Indication: Acute HIV infection
     Dosage: DOSE UNKNOWN
     Route: 030
     Dates: start: 2023, end: 2023
  3. EDURANT [Concomitant]
     Active Substance: RILPIVIRINE HYDROCHLORIDE
     Indication: Acute HIV infection
     Dosage: DOSE UNKNOWN
     Route: 048
     Dates: start: 2023
  4. TRIUMEQ [Concomitant]
     Active Substance: ABACAVIR SULFATE\DOLUTEGRAVIR SODIUM\LAMIVUDINE
     Indication: Acute HIV infection
     Dosage: DOSE UNKNOWN
     Route: 048
     Dates: start: 2016
  5. MARAVIROC [Concomitant]
     Active Substance: MARAVIROC
     Indication: Acute HIV infection
     Route: 048
     Dates: start: 2016
  6. GENVOYA [Concomitant]
     Active Substance: COBICISTAT\ELVITEGRAVIR\EMTRICITABINE\TENOFOVIR ALAFENAMIDE FUMARATE
     Indication: Acute HIV infection
     Dosage: DOSE UNKNOWN
     Route: 048
     Dates: start: 2017
  7. VOCABRIA [Concomitant]
     Active Substance: CABOTEGRAVIR SODIUM
     Indication: Acute HIV infection
     Dosage: DOSE UNKNOWN
     Route: 048
     Dates: start: 2023
  8. UNSPECIFIED INGREDIENT [Concomitant]
     Active Substance: UNSPECIFIED INGREDIENT
     Dosage: DOSE UNKNOWN
     Route: 030
     Dates: start: 2023
  9. METHYLPREDNISOLONE [Concomitant]
     Active Substance: METHYLPREDNISOLONE
     Dosage: DOSE UNKNOWNPULSE
     Dates: start: 20231220
  10. BIKTARVY [Concomitant]
     Active Substance: BICTEGRAVIR SODIUM\EMTRICITABINE\TENOFOVIR ALAFENAMIDE FUMARATE
     Indication: Acute HIV infection
     Dosage: DOSE UNKNOWN
     Route: 048

REACTIONS (1)
  - Acute hepatitis B [Recovering/Resolving]

NARRATIVE: CASE EVENT DATE: 20230101
